FAERS Safety Report 7040536-0 (Version None)
Quarter: 2010Q4

REPORT INFORMATION
  Report Type: 
  Country: None (occurrence: None)
  Receive Date: 20101008
  Receipt Date: 20101008
  Transmission Date: 20110411
  Serious: Yes (Death, Hospitalization)
  Sender: FDA-Public Use
  Company Number: None

PATIENT
  Sex: Female
  Weight: 91.8 kg

DRUGS (1)
  1. ALIMTA [Suspect]
     Indication: ADENOCARCINOMA
     Dosage: 500 MG/M2 I.V.
     Route: 042
     Dates: start: 20100527

REACTIONS (12)
  - BLOOD DISORDER [None]
  - CHEILITIS [None]
  - DIARRHOEA [None]
  - DISCOMFORT [None]
  - DRUG HYPERSENSITIVITY [None]
  - DYSPNOEA [None]
  - FATIGUE [None]
  - HYPOPHAGIA [None]
  - LUNG ADENOCARCINOMA [None]
  - NAUSEA [None]
  - STOMATITIS [None]
  - THROAT IRRITATION [None]
